FAERS Safety Report 7027125-9 (Version None)
Quarter: 2010Q4

REPORT INFORMATION
  Report Type: 
  Country: None (occurrence: None)
  Receive Date: 20101004
  Receipt Date: 20100926
  Transmission Date: 20110411
  Serious: Yes (Hospitalization, Other)
  Sender: FDA-Public Use
  Company Number: US-US-EMD SERONO, INC.-7010488

PATIENT
  Sex: Female

DRUGS (7)
  1. REBIF [Suspect]
     Indication: PRODUCT USED FOR UNKNOWN INDICATION
     Route: 058
     Dates: start: 20090708
  2. ALTACE [Concomitant]
  3. CLONIDINE [Concomitant]
  4. HUMULIN 70/30 [Concomitant]
  5. GLUCOPHAGE XR [Concomitant]
  6. NEURONTIN [Concomitant]
  7. IBUPROFEN [Concomitant]

REACTIONS (9)
  - BLOOD PRESSURE ABNORMAL [None]
  - BREAST ABSCESS [None]
  - BRONCHITIS [None]
  - HEADACHE [None]
  - HYPOAESTHESIA [None]
  - MASTITIS [None]
  - PARAESTHESIA [None]
  - PNEUMONIA [None]
  - STAPHYLOCOCCAL INFECTION [None]
